FAERS Safety Report 8232528-0 (Version None)
Quarter: 2012Q1

REPORT INFORMATION
  Report Type: 
  Country: None (occurrence: None)
  Receive Date: 20120323
  Receipt Date: 20120321
  Transmission Date: 20120608
  Serious: Yes (Hospitalization, Disabling)
  Sender: FDA-Public Use
  Company Number: CA-ABBOTT-12P-028-0917389-00

PATIENT
  Age: 49 Year
  Sex: Female

DRUGS (1)
  1. HUMIRA [Suspect]
     Indication: PRODUCT USED FOR UNKNOWN INDICATION
     Route: 058

REACTIONS (8)
  - LEUKOPENIA [None]
  - COUGH [None]
  - MALAISE [None]
  - INFLUENZA LIKE ILLNESS [None]
  - CONDITION AGGRAVATED [None]
  - FATIGUE [None]
  - ASTHENIA [None]
  - HEADACHE [None]
